FAERS Safety Report 7387097-4 (Version None)
Quarter: 2011Q1

REPORT INFORMATION
  Report Type: 
  Country: None (occurrence: None)
  Receive Date: 20110331
  Receipt Date: 20110322
  Transmission Date: 20110831
  Serious: Yes (Death, Hospitalization)
  Sender: FDA-Public Use
  Company Number: A0719190A

PATIENT
  Age: 78 Year
  Sex: Female
  Weight: 104.5 kg

DRUGS (5)
  1. LIPITOR [Concomitant]
  2. AVANDIA [Suspect]
     Dosage: 4MG PER DAY
     Route: 048
     Dates: start: 20010301, end: 20051215
  3. CELEXA [Concomitant]
  4. AMARYL [Concomitant]
  5. NITRODERM [Concomitant]

REACTIONS (4)
  - CARDIAC FAILURE CONGESTIVE [None]
  - PAIN [None]
  - MYOCARDIAL INFARCTION [None]
  - ANXIETY [None]
